FAERS Safety Report 8298602-8 (Version None)
Quarter: 2012Q1

REPORT INFORMATION
  Report Type: 
  Country: None (occurrence: None)
  Receive Date: 20120323
  Receipt Date: 20090821
  Transmission Date: 20120608
  Serious: Yes (Other)
  Sender: FDA-Public Use
  Company Number: PHEH2009US09417

PATIENT

DRUGS (1)
  1. TOBI [Suspect]
     Dosage: INHALATION
     Route: 055

REACTIONS (3)
  - BRONCHOSPASM [None]
  - INCREASED UPPER AIRWAY SECRETION [None]
  - COUGH [None]
